FAERS Safety Report 7586957-9 (Version None)
Quarter: 2011Q3

REPORT INFORMATION
  Report Type: 
  Country: None (occurrence: None)
  Receive Date: 20110701
  Receipt Date: 20110621
  Transmission Date: 20111222
  Serious: Yes (Other)
  Sender: FDA-Public Use
  Company Number: NO-AMGEN-NORSP2011026889

PATIENT
  Sex: Female

DRUGS (5)
  1. FLUOROURACIL [Concomitant]
     Dosage: UNK
     Dates: start: 20110401
  2. GRANULOCYTE COLONY STIMULATING FACTOR [Concomitant]
  3. LEUCOVORIN                         /00566702/ [Concomitant]
     Dosage: UNK
     Dates: start: 20110401
  4. NEULASTA [Suspect]
     Indication: CHEMOTHERAPY
     Dosage: UNK
     Dates: start: 20110401
  5. OXALIPLATIN [Concomitant]
     Dosage: UNK
     Dates: start: 20110401

REACTIONS (3)
  - THROAT IRRITATION [None]
  - ANAPHYLACTIC REACTION [None]
  - RASH GENERALISED [None]
